FAERS Safety Report 10129480 (Version 1)
Quarter: 2014Q2

REPORT INFORMATION
  Report Type: Spontaneous
  Country: FR (occurrence: FR)
  Receive Date: 20140428
  Receipt Date: 20140428
  Transmission Date: 20141212
  Serious: Yes (Death, Hospitalization)
  Sender: FDA-Public Use
  Company Number: FR-SA-2014SA049009

PATIENT
  Age: 67 Year
  Sex: Male

DRUGS (5)
  1. JEVTANA [Suspect]
     Indication: PROSTATE CANCER
     Route: 065
     Dates: start: 20140219
  2. SEROPLEX [Concomitant]
     Dates: start: 20140213
  3. BISOPROLOL [Concomitant]
  4. ZOPICLONE [Concomitant]
  5. VALSARTAN [Concomitant]

REACTIONS (4)
  - Lung disorder [Fatal]
  - Leukopenia [Fatal]
  - Neutropenia [Fatal]
  - Thrombocytopenia [Fatal]
